FAERS Safety Report 5457904-0 (Version None)
Quarter: 2007Q3

REPORT INFORMATION
  Report Type: 
  Country: None (occurrence: None)
  Receive Date: 20070918
  Receipt Date: 20070903
  Transmission Date: 20080115
  Serious: Yes (Other)
  Sender: FDA-Public Use
  Company Number: GB-PFIZER INC-2007076623

PATIENT
  Sex: Male

DRUGS (3)
  1. VIRACEPT [Suspect]
  2. ABACAVIR [Concomitant]
  3. DDI [Concomitant]

REACTIONS (1)
  - CD4 LYMPHOCYTES DECREASED [None]
